FAERS Safety Report 8080726-1 (Version None)
Quarter: 2012Q1

REPORT INFORMATION
  Report Type: 
  Country: None (occurrence: None)
  Receive Date: 20120130
  Receipt Date: 20120125
  Transmission Date: 20120608
  Serious: Yes (Death, Other)
  Sender: FDA-Public Use
  Company Number: PHHY2012AU000543

PATIENT
  Sex: Male

DRUGS (3)
  1. LIPITOR [Concomitant]
     Dosage: 80 MG, QD
     Route: 048
  2. DITROPAN [Concomitant]
     Dosage: 5 MG, NOCTE
     Route: 048
  3. CLOZARIL [Suspect]
     Dosage: 475 MG
     Dates: start: 20050916

REACTIONS (3)
  - ROAD TRAFFIC ACCIDENT [None]
  - DROWNING [None]
  - DELUSION [None]
